FAERS Safety Report 25571120 (Version 3)
Quarter: 2025Q3

REPORT INFORMATION
  Report Type: Spontaneous
  Country: SG (occurrence: SG)
  Receive Date: 20250717
  Receipt Date: 20250806
  Transmission Date: 20251021
  Serious: Yes (Hospitalization, Other)
  Sender: ROCHE
  Company Number: SG-ROCHE-10000337460

PATIENT
  Age: 63 Year
  Sex: Female
  Weight: 72 kg

DRUGS (3)
  1. PHESGO [Suspect]
     Active Substance: HYALURONIDASE-ZZXF\PERTUZUMAB\TRASTUZUMAB
     Indication: Breast cancer
     Route: 065
  2. LETRONAT [Concomitant]
     Route: 048
  3. NOVOFEN [Concomitant]

REACTIONS (5)
  - Tumour haemorrhage [Unknown]
  - Pyrexia [Unknown]
  - Loss of consciousness [Unknown]
  - Bacteraemia [Unknown]
  - Immunodeficiency [Unknown]
